FAERS Safety Report 6309774-6 (Version None)
Quarter: 2009Q3

REPORT INFORMATION
  Report Type: 
  Country: None (occurrence: None)
  Receive Date: 20090811
  Receipt Date: 20090701
  Transmission Date: 20100115
  Serious: No
  Sender: FDA-Public Use
  Company Number: 1000007178

PATIENT
  Age: 60 Year
  Sex: Female

DRUGS (17)
  1. SAVELLA [Suspect]
     Indication: FIBROMYALGIA
     Dosage: 12.5 MG (12.5 MG, 1 IN 1 D) , ORAL : 25 MG (12.5 MG, 2 IN 1 D) , ORAL
     Route: 048
     Dates: start: 20090627, end: 20090627
  2. SAVELLA [Suspect]
     Indication: FIBROMYALGIA
     Dosage: 12.5 MG (12.5 MG, 1 IN 1 D) , ORAL : 25 MG (12.5 MG, 2 IN 1 D) , ORAL
     Route: 048
     Dates: start: 20090628, end: 20090629
  3. SAVELLA [Suspect]
     Indication: FIBROMYALGIA
     Dosage: 50 MG (25 MG, 2 IN 1 D) , ORAL
     Route: 048
     Dates: start: 20090630, end: 20090630
  4. COUMADIN [Concomitant]
  5. SANCTURA [Concomitant]
  6. METFORMIN HCL [Concomitant]
  7. CALTRATE D [Concomitant]
  8. ZOLOFT [Concomitant]
  9. HYDROCODONE [Concomitant]
  10. FLEXERIL [Concomitant]
  11. COREG [Concomitant]
  12. ASPIRIN [Concomitant]
  13. CADUET [Concomitant]
  14. SPIRONOLACTONE [Concomitant]
  15. KLONOPIN [Concomitant]
  16. DIGOXIN [Concomitant]
  17. LASIX [Concomitant]

REACTIONS (5)
  - ABDOMINAL PAIN UPPER [None]
  - FATIGUE [None]
  - HEADACHE [None]
  - HEART RATE INCREASED [None]
  - NAUSEA [None]
